FAERS Safety Report 20059227 (Version 1)
Quarter: 2021Q4

REPORT INFORMATION
  Report Type: Spontaneous
  Country: US (occurrence: US)
  Receive Date: 20211111
  Receipt Date: 20211111
  Transmission Date: 20220303
  Serious: Yes (Hospitalization, Other)
  Sender: FDA-Public Use
  Company Number: US-Fresenius Medical Care Renal Therapies Group-FMC-2110-001652

PATIENT
  Age: 75 Year
  Sex: Female
  Weight: 76 kg

DRUGS (1)
  1. DELFLEX [Suspect]
     Active Substance: CALCIUM CHLORIDE\DEXTROSE\MAGNESIUM CHLORIDE\SODIUM CHLORIDE\SODIUM LACTATE
     Indication: End stage renal disease
     Dosage: 4 FILLS OF 2,300ML FILL VOLUME, DWELL OF 1 HOUR AND 15 MINUTES, WITH NO LAST FILL AND NO DAYTIME EXC
     Route: 033

REACTIONS (2)
  - Peritonitis [Recovered/Resolved]
  - Peritonitis bacterial [Unknown]

NARRATIVE: CASE EVENT DATE: 20210601
